FAERS Safety Report 16614730 (Version 6)
Quarter: 2020Q3

REPORT INFORMATION
  Report Type: Spontaneous
  Country: IL (occurrence: IL)
  Receive Date: 20190723
  Receipt Date: 20200723
  Transmission Date: 20201102
  Serious: Yes (Hospitalization)
  Sender: FDA-Public Use
  Company Number: IL-ACTELION-A-CH2019-193114

PATIENT
  Age: 84 Year
  Sex: Female

DRUGS (17)
  1. GLUCOPHAGE [Concomitant]
     Active Substance: METFORMIN HYDROCHLORIDE
  2. CALCIUM [Concomitant]
     Active Substance: CALCIUM
  3. VITAMIN D [COLECALCIFEROL] [Concomitant]
     Active Substance: CHOLECALCIFEROL
  4. VABEN [Concomitant]
     Active Substance: OXAZEPAM
  5. MAGNESIUM [Concomitant]
     Active Substance: MAGNESIUM
  6. VALSARTAN. [Concomitant]
     Active Substance: VALSARTAN
  7. PRADAXA [Concomitant]
     Active Substance: DABIGATRAN ETEXILATE MESYLATE
  8. CARDILOC [Concomitant]
     Active Substance: BISOPROLOL FUMARATE
  9. SPIRONOLACTONE. [Concomitant]
     Active Substance: SPIRONOLACTONE
  10. ELIQUIS [Concomitant]
     Active Substance: APIXABAN
  11. OPSUMIT [Suspect]
     Active Substance: MACITENTAN
     Indication: PULMONARY ARTERIAL HYPERTENSION
     Dosage: 10 MG, OD
     Route: 048
     Dates: start: 20190305
  12. BONDORMIN [Concomitant]
     Active Substance: BROTIZOLAM
  13. OMEPRADEX [Concomitant]
     Active Substance: OMEPRAZOLE
  14. SIMVACOR [Concomitant]
     Active Substance: SIMVASTATIN
  15. FOSTER [Concomitant]
     Active Substance: BECLOMETHASONE\FORMOTEROL
  16. CALCIUM + MAGNESIUM [Concomitant]
     Active Substance: CALCIUM\MAGNESIUM
  17. NOVONORM [Concomitant]
     Active Substance: REPAGLINIDE

REACTIONS (8)
  - Pulmonary oedema [Recovered/Resolved]
  - Asthenia [Recovering/Resolving]
  - Rash pruritic [Not Recovered/Not Resolved]
  - Dyspnoea [Recovering/Resolving]
  - Haemoglobin decreased [Unknown]
  - Presyncope [Not Recovered/Not Resolved]
  - Dermatitis [Not Recovered/Not Resolved]
  - Oedema [Recovering/Resolving]

NARRATIVE: CASE EVENT DATE: 2019
